FAERS Safety Report 4710731-1 (Version None)
Quarter: 2005Q3

REPORT INFORMATION
  Report Type: 
  Country: None (occurrence: None)
  Receive Date: 20050707
  Receipt Date: 20050624
  Transmission Date: 20060218
  Serious: Yes (Death, Life-Threatening, Hospitalization, Disabling)
  Sender: FDA-Public Use
  Company Number: 11691

PATIENT
  Age: 56 Year
  Sex: Male

DRUGS (4)
  1. CARBOPLATIN [Suspect]
     Indication: LUNG NEOPLASM MALIGNANT
     Dosage: 1440 MG TOTAL
     Route: 042
     Dates: start: 20050228, end: 20050321
  2. GEMCITABINE [Suspect]
     Indication: LUNG NEOPLASM MALIGNANT
     Dosage: 7524 MG TOTAL
     Route: 042
     Dates: start: 20050228, end: 20050321
  3. GRANISETRON [Concomitant]
  4. DEXAMETHASONE [Concomitant]
     Route: 042

REACTIONS (2)
  - MYOCARDIAL INFARCTION [None]
  - VASCULITIS CEREBRAL [None]
